FAERS Safety Report 17270723 (Version 1)
Quarter: 2020Q1

REPORT INFORMATION
  Report Type: Report from Study
  Country: None (occurrence: US)
  Receive Date: 20200114
  Receipt Date: 20200114
  Transmission Date: 20200409
  Serious: Yes (Hospitalization)
  Sender: FDA-Public Use
  Company Number: US-ABBVIE-19K-163-2912526-00

PATIENT
  Sex: Female
  Weight: 50.85 kg

DRUGS (1)
  1. HUMIRA [Suspect]
     Active Substance: ADALIMUMAB
     Indication: CROHN^S DISEASE
     Route: 058
     Dates: start: 20150825

REACTIONS (4)
  - Flatulence [Unknown]
  - Gastric disorder [Unknown]
  - Intestinal perforation [Unknown]
  - Crohn^s disease [Recovered/Resolved]
